FAERS Safety Report 6019172-0 (Version None)
Quarter: 2008Q4

REPORT INFORMATION
  Report Type: 
  Country: None (occurrence: None)
  Receive Date: 20081224
  Receipt Date: 20081216
  Transmission Date: 20090506
  Serious: Yes (Hospitalization, Other)
  Sender: FDA-Public Use
  Company Number: JP-PFIZER INC-2007096108

PATIENT

DRUGS (5)
  1. TOLTERODINE TARTRATE [Suspect]
     Indication: HYPERTONIC BLADDER
     Dosage: 4 MG, 1X/DAY
     Route: 048
     Dates: start: 20061226, end: 20070109
  2. WARFARIN SODIUM [Concomitant]
     Route: 048
     Dates: start: 20061019, end: 20070109
  3. VALSARTAN [Concomitant]
     Route: 048
     Dates: start: 20061019, end: 20070109
  4. MUCOSOLVAN [Concomitant]
     Route: 048
     Dates: start: 20061019, end: 20070109
  5. DEPAS [Concomitant]
     Route: 048
     Dates: start: 20061019, end: 20070109

REACTIONS (4)
  - DIZZINESS [None]
  - POLLAKIURIA [None]
  - SARCOMA [None]
  - URINARY RETENTION [None]
